FAERS Safety Report 6825860-6 (Version None)
Quarter: 2010Q3

REPORT INFORMATION
  Report Type: 
  Country: None (occurrence: None)
  Receive Date: 20100709
  Receipt Date: 20100702
  Transmission Date: 20110219
  Serious: Yes (Hospitalization)
  Sender: FDA-Public Use
  Company Number: US-ELI_LILLY_AND_COMPANY-US201007000562

PATIENT
  Sex: Male
  Weight: 163.27 kg

DRUGS (4)
  1. BYETTA [Suspect]
     Indication: TYPE 2 DIABETES MELLITUS
     Dosage: UNK, UNK
     Route: 058
  2. HUMALOG MIX [Concomitant]
     Indication: TYPE 2 DIABETES MELLITUS
     Dosage: 30 U, EACH MORNING
  3. HUMALOG MIX [Concomitant]
     Dosage: 40 U, EACH EVENING
  4. THIORIDAZINE HCL [Concomitant]
     Indication: SCHIZOPHRENIA

REACTIONS (5)
  - BLOOD GLUCOSE INCREASED [None]
  - DYSPEPSIA [None]
  - DYSPNOEA [None]
  - HUNGER [None]
  - WEIGHT INCREASED [None]
